FAERS Safety Report 6028374-9 (Version None)
Quarter: 2009Q1

REPORT INFORMATION
  Report Type: 
  Country: None (occurrence: None)
  Receive Date: 20090106
  Receipt Date: 20081231
  Transmission Date: 20090719
  Serious: Yes (Other)
  Sender: FDA-Public Use
  Company Number: US-BIOGENIDEC-2007BI004265

PATIENT
  Age: 62 Year
  Sex: Female

DRUGS (1)
  1. AVONEX [Suspect]
     Indication: MULTIPLE SCLEROSIS
     Route: 030
     Dates: start: 19980101, end: 20000101

REACTIONS (2)
  - BREAST CANCER [None]
  - BREAST CANCER STAGE II [None]
